FAERS Safety Report 19932493 (Version 1)
Quarter: 2021Q4

REPORT INFORMATION
  Report Type: Spontaneous
  Country: US (occurrence: US)
  Receive Date: 20211008
  Receipt Date: 20211008
  Transmission Date: 20220303
  Serious: Yes (Other)
  Sender: FDA-Public Use
  Company Number: US-CADILA HEALTHCARE LIMITED-US-ZYDUS-070255

PATIENT

DRUGS (2)
  1. HYDROXYCHLOROQUINE [Suspect]
     Active Substance: HYDROXYCHLOROQUINE
     Indication: Antiphospholipid syndrome
     Dosage: UNK
     Route: 065
  2. WARFARIN [Concomitant]
     Active Substance: WARFARIN
     Indication: Antiphospholipid syndrome
     Dosage: UNK

REACTIONS (2)
  - Meningitis [Unknown]
  - Cytomegalovirus infection [Unknown]
